FAERS Safety Report 13627765 (Version 1)
Quarter: 2017Q2

REPORT INFORMATION
  Report Type: Spontaneous
  Country: US (occurrence: US)
  Receive Date: 20170531
  Receipt Date: 20170531
  Transmission Date: 20170830
  Serious: Yes (Hospitalization)
  Sender: FDA-Public Use
  Company Number: US-ASTELLAS-1581865

PATIENT
  Age: 70 Year
  Sex: Male
  Weight: 82.17 kg

DRUGS (10)
  1. LYRICA [Concomitant]
     Active Substance: PREGABALIN
  2. PREDNISONE. [Concomitant]
     Active Substance: PREDNISONE
  3. LASIX [Concomitant]
     Active Substance: FUROSEMIDE
  4. TIZANIDINE. [Concomitant]
     Active Substance: TIZANIDINE
  5. NORVASC [Concomitant]
     Active Substance: AMLODIPINE BESYLATE
  6. CELEXA [Concomitant]
     Active Substance: CITALOPRAM HYDROBROMIDE
  7. DOXYCYCLINE. [Concomitant]
     Active Substance: DOXYCYCLINE
  8. ZYRTEC [Concomitant]
     Active Substance: CETIRIZINE HYDROCHLORIDE
  9. TARCEVA [Suspect]
     Active Substance: ERLOTINIB HYDROCHLORIDE
     Indication: LUNG NEOPLASM MALIGNANT
     Route: 048
     Dates: start: 20150301, end: 20150511
  10. AMIODARONA [Concomitant]
     Active Substance: AMIODARONE

REACTIONS (2)
  - Pneumonia [Unknown]
  - Herpes simplex [Unknown]

NARRATIVE: CASE EVENT DATE: 20150418
